FAERS Safety Report 9548368 (Version 1)
Quarter: 2013Q3

REPORT INFORMATION
  Report Type: Spontaneous
  Country: US (occurrence: None)
  Receive Date: 20130923
  Receipt Date: 20130923
  Transmission Date: 20140515
  Serious: Yes (Disabling)
  Sender: FDA-Public Use
  Company Number: None

PATIENT
  Age: 18 Year
  Sex: Male
  Weight: 61.24 kg

DRUGS (1)
  1. MINOCYCLINE 100 MG WATSON LABS [Suspect]
     Indication: ACNE
     Dosage: 1 CAPSULE
     Route: 048

REACTIONS (4)
  - Product substitution issue [None]
  - Arthralgia [None]
  - Activities of daily living impaired [None]
  - Product quality issue [None]
